FAERS Safety Report 7630323-4 (Version None)
Quarter: 2011Q3

REPORT INFORMATION
  Report Type: 
  Country: None (occurrence: None)
  Receive Date: 20110722
  Receipt Date: 20110715
  Transmission Date: 20111222
  Serious: Yes (Hospitalization, Other)
  Sender: FDA-Public Use
  Company Number: US-BAYER-201032533NA

PATIENT
  Age: 21 Year
  Sex: Female
  Weight: 54.875 kg

DRUGS (8)
  1. YAZ [Suspect]
     Indication: PREMENSTRUAL SYNDROME
  2. YAZ [Suspect]
     Indication: ORAL CONTRACEPTION
     Dosage: UNK
     Route: 048
     Dates: start: 20080301, end: 20090815
  3. ACETAMINOPHEN W/ CODEINE [Concomitant]
     Dosage: UNK
     Dates: start: 20090712
  4. LEVOTHYROXINE SODIUM [Concomitant]
     Indication: HYPOTHYROIDISM
     Dosage: UNK
     Dates: start: 20040101
  5. PROVENTIL [Concomitant]
     Dosage: UNK
     Dates: start: 20090712
  6. PREDNISONE [Concomitant]
     Dosage: UNK
     Dates: start: 20090712
  7. PROMETHAZINE [Concomitant]
     Dosage: UNK
     Dates: start: 20090712
  8. GNC VITAMIN PACK [Concomitant]

REACTIONS (9)
  - NAUSEA [None]
  - VOMITING [None]
  - PYREXIA [None]
  - DEEP VEIN THROMBOSIS [None]
  - OESOPHAGITIS [None]
  - ABDOMINAL PAIN [None]
  - DYSPEPSIA [None]
  - WEIGHT DECREASED [None]
  - DIARRHOEA [None]
